FAERS Safety Report 13491193 (Version 1)
Quarter: 2017Q2

REPORT INFORMATION
  Report Type: Spontaneous
  Country: US (occurrence: US)
  Receive Date: 20170427
  Receipt Date: 20170427
  Transmission Date: 20170830
  Serious: No
  Sender: FDA-Public Use
  Company Number: US-CELGENEUS-USA-20170405556

PATIENT
  Age: 19 Year
  Sex: Female

DRUGS (1)
  1. OTEZLA [Suspect]
     Active Substance: APREMILAST
     Indication: PSORIATIC ARTHROPATHY
     Route: 048
     Dates: start: 20170415

REACTIONS (12)
  - Oropharyngeal pain [Unknown]
  - Anxiety [Unknown]
  - Headache [Unknown]
  - Tremor [Unknown]
  - Nightmare [Unknown]
  - Cough [Unknown]
  - Nausea [Unknown]
  - Restlessness [Unknown]
  - Abdominal pain [Unknown]
  - Back pain [Unknown]
  - Nasal congestion [Unknown]
  - Menstrual disorder [Unknown]

NARRATIVE: CASE EVENT DATE: 20170415
